FAERS Safety Report 17599135 (Version 1)
Quarter: 2020Q1

REPORT INFORMATION
  Report Type: Spontaneous
  Country: CA (occurrence: CA)
  Receive Date: 20200330
  Receipt Date: 20200330
  Transmission Date: 20200409
  Serious: Yes (Death)
  Sender: FDA-Public Use
  Company Number: CA-PFIZER INC-2019120167

PATIENT
  Age: 58 Year
  Sex: Female

DRUGS (2)
  1. SUTENT [Suspect]
     Active Substance: SUNITINIB MALATE
     Dosage: 37.5 MG, OD, 2 WEEKS ON/ 1 WEEK OFF
     Route: 048
  2. SUTENT [Suspect]
     Active Substance: SUNITINIB MALATE
     Dosage: 25 MG, OD, 2 WEEKS ON/ 1 WEEK OFF
     Route: 048
     Dates: start: 20190215

REACTIONS (5)
  - Skin ulcer [Not Recovered/Not Resolved]
  - Death [Fatal]
  - Blood urine [Recovered/Resolved]
  - Stomatitis [Not Recovered/Not Resolved]
  - Fatigue [Not Recovered/Not Resolved]
